FAERS Safety Report 17644452 (Version 2)
Quarter: 2020Q2

REPORT INFORMATION
  Report Type: Spontaneous
  Country: US (occurrence: US)
  Receive Date: 20200408
  Receipt Date: 20200508
  Transmission Date: 20200713
  Serious: Yes (Disabling, Other)
  Sender: FDA-Public Use
  Company Number: US-GLAXOSMITHKLINE-US2020058511

PATIENT
  Age: 92 Year
  Sex: Female

DRUGS (3)
  1. BEOVU [Suspect]
     Active Substance: BROLUCIZUMAB-DBLL
     Indication: NEOVASCULAR AGE-RELATED MACULAR DEGENERATION
     Dosage: UNK UNK, Q4W
     Route: 031
     Dates: start: 20191220, end: 20200121
  2. SPIRONOLACTONE. [Suspect]
     Active Substance: SPIRONOLACTONE
     Indication: HYPERTENSION
     Dosage: UNK, QD
     Route: 048
  3. BEOVU [Suspect]
     Active Substance: BROLUCIZUMAB-DBLL
     Dosage: 6 MG, QD
     Route: 047
     Dates: start: 20200121, end: 20200218

REACTIONS (6)
  - Vision blurred [Unknown]
  - Retinal artery occlusion [Not Recovered/Not Resolved]
  - Eye inflammation [Unknown]
  - Uveitis [Not Recovered/Not Resolved]
  - Retinal vasculitis [Not Recovered/Not Resolved]
  - Vitreous floaters [Unknown]

NARRATIVE: CASE EVENT DATE: 20200218
